FAERS Safety Report 9825957 (Version 1)
Quarter: 2014Q1

REPORT INFORMATION
  Report Type: Spontaneous
  Country: US (occurrence: None)
  Receive Date: 20140116
  Receipt Date: 20140116
  Transmission Date: 20141002
  Serious: Yes (Death)
  Sender: FDA-Public Use
  Company Number: None

PATIENT
  Age: 57 Year
  Sex: Male
  Weight: 104.33 kg

DRUGS (1)
  1. CIALIS 5 MG [Suspect]
     Indication: ERECTILE DYSFUNCTION
     Dosage: 1 TABLET
     Route: 048

REACTIONS (1)
  - Death [None]
